FAERS Safety Report 11855208 (Version 1)
Quarter: 2015Q4

REPORT INFORMATION
  Report Type: Spontaneous
  Country: None (occurrence: None)
  Receive Date: 20151218
  Receipt Date: 20151218
  Transmission Date: 20160305
  Serious: Yes (Hospitalization)
  Sender: FDA-Public Use
  Company Number: None

PATIENT
  Age: 51 Year
  Sex: Female
  Weight: 65.9 kg

DRUGS (1)
  1. INVOKANA [Suspect]
     Active Substance: CANAGLIFLOZIN
     Indication: DIABETES MELLITUS
     Route: 048
     Dates: start: 20151120, end: 20151216

REACTIONS (8)
  - Flank pain [None]
  - Diabetic ketoacidosis [None]
  - Pyelonephritis [None]
  - Dehydration [None]
  - Leukocytosis [None]
  - Hyperphosphataemia [None]
  - Metabolic acidosis [None]
  - Renal failure [None]

NARRATIVE: CASE EVENT DATE: 20151217
